FAERS Safety Report 9509666 (Version 1)
Quarter: 2013Q3

REPORT INFORMATION
  Report Type: Spontaneous
  Country: US (occurrence: US)
  Receive Date: 20130909
  Receipt Date: 20130909
  Transmission Date: 20140515
  Serious: No
  Sender: FDA-Public Use
  Company Number: US-BRISTOL-MYERS SQUIBB COMPANY-17196494

PATIENT
  Age: 54 Year
  Sex: Male

DRUGS (3)
  1. ABILIFY TABS 10 MG [Suspect]
  2. ZYPREXA [Concomitant]
  3. LITHIUM [Concomitant]

REACTIONS (1)
  - Initial insomnia [Unknown]
